FAERS Safety Report 5740938-6 (Version None)
Quarter: 2008Q2

REPORT INFORMATION
  Report Type: 
  Country: None (occurrence: None)
  Receive Date: 20080516
  Receipt Date: 20080514
  Transmission Date: 20081010
  Serious: Yes (Life-Threatening)
  Sender: FDA-Public Use
  Company Number: US-WYE-H03632908

PATIENT
  Sex: Female

DRUGS (3)
  1. MYLOTARG [Suspect]
     Indication: ACUTE MYELOID LEUKAEMIA
     Dosage: 57.5 ML/HR (2 HOURS)
     Route: 042
     Dates: start: 20080325, end: 20080325
  2. MYLOTARG [Suspect]
     Dosage: 57.5 ML/HR (2 HOURS)
     Route: 042
     Dates: start: 20080416, end: 20080416
  3. CYTARABINE [Concomitant]
     Indication: ACUTE MYELOID LEUKAEMIA
     Dosage: 99.3 ML/HR (3 HOUR)
     Route: 042
     Dates: start: 20080322, end: 20080327

REACTIONS (2)
  - CONGESTIVE CARDIOMYOPATHY [None]
  - PULMONARY OEDEMA [None]
